FAERS Safety Report 15678846 (Version 1)
Quarter: 2018Q4

REPORT INFORMATION
  Report Type: Spontaneous
  Country: IT (occurrence: IT)
  Receive Date: 20181202
  Receipt Date: 20181202
  Transmission Date: 20190205
  Serious: Yes (Other)
  Sender: FDA-Public Use
  Company Number: PHHY2018IT169658

PATIENT
  Age: 36 Year
  Sex: Male

DRUGS (5)
  1. ENTUMIN [Suspect]
     Active Substance: CLOTHIAPINE
     Indication: INTENTIONAL OVERDOSE
     Dosage: 17 GTT, UNK (TOTAL)
     Route: 048
  2. DELORAZEPAM [Suspect]
     Active Substance: DELORAZEPAM
     Indication: INTENTIONAL OVERDOSE
     Dosage: 3 DF, UNK (TOTAL)
     Route: 048
     Dates: start: 20181025, end: 20181025
  3. LAMOTRIGINE. [Suspect]
     Active Substance: LAMOTRIGINE
     Indication: INTENTIONAL OVERDOSE
     Dosage: 600 MG, UNK (TOTAL)
     Route: 048
     Dates: start: 20181025, end: 20181025
  4. HALDOL [Suspect]
     Active Substance: HALOPERIDOL
     Indication: INTENTIONAL OVERDOSE
     Dosage: 6 DF, UNK (TOTAL)
     Route: 048
     Dates: start: 20181025, end: 20181025
  5. SEROQUEL [Suspect]
     Active Substance: QUETIAPINE FUMARATE
     Indication: INTENTIONAL OVERDOSE
     Dosage: 4 DF, UNK (TOTAL)
     Route: 048
     Dates: start: 20181025, end: 20181025

REACTIONS (3)
  - Bradyphrenia [Recovered/Resolved]
  - Hypokinesia [Recovered/Resolved]
  - Palpitations [Recovered/Resolved]

NARRATIVE: CASE EVENT DATE: 20181026
